FAERS Safety Report 24754504 (Version 1)
Quarter: 2024Q4

REPORT INFORMATION
  Report Type: Spontaneous
  Country: PT (occurrence: PT)
  Receive Date: 20241219
  Receipt Date: 20241219
  Transmission Date: 20250115
  Serious: Yes (Death, Hospitalization, Other)
  Sender: ALEXION PHARMACEUTICALS
  Company Number: PT-SA-2024SA367222

PATIENT
  Age: 32 Day

DRUGS (1)
  1. NIRSEVIMAB [Suspect]
     Active Substance: NIRSEVIMAB
     Indication: Respiratory syncytial virus immunisation
     Dosage: UNK
     Route: 065

REACTIONS (4)
  - Death [Fatal]
  - Bronchiolitis [Unknown]
  - Influenza [Unknown]
  - Cardiac disorder [Unknown]
